FAERS Safety Report 20650675 (Version 3)
Quarter: 2022Q2

REPORT INFORMATION
  Report Type: Spontaneous
  Country: US (occurrence: US)
  Receive Date: 20220329
  Receipt Date: 20220526
  Transmission Date: 20220721
  Serious: Yes (Other)
  Sender: FDA-Public Use
  Company Number: US-PFIZER INC-202200463363

PATIENT
  Age: 54 Year
  Sex: Female
  Weight: 85.3 kg

DRUGS (2)
  1. ESTRING [Suspect]
     Active Substance: ESTRADIOL
     Indication: Urinary tract infection
     Dosage: 2 MG, EVERY 3 MONTHS
     Route: 067
     Dates: start: 20201216
  2. ESTRING [Suspect]
     Active Substance: ESTRADIOL
     Indication: Genitourinary syndrome of menopause

REACTIONS (4)
  - Vulvovaginal mycotic infection [Unknown]
  - Hyperthyroidism [Unknown]
  - Anti-thyroid antibody increased [Unknown]
  - Dehydroepiandrosterone increased [Unknown]
